FAERS Safety Report 6825619-X (Version None)
Quarter: 2010Q3

REPORT INFORMATION
  Report Type: 
  Country: None (occurrence: None)
  Receive Date: 20100708
  Receipt Date: 20070301
  Transmission Date: 20110219
  Serious: No
  Sender: FDA-Public Use
  Company Number: US-PFIZER INC-2006147364

PATIENT
  Sex: Female
  Weight: 48.99 kg

DRUGS (9)
  1. CHANTIX [Suspect]
     Dates: start: 20061007, end: 20060101
  2. PLAVIX [Concomitant]
  3. LIPITOR [Concomitant]
  4. MONTELUKAST SODIUM [Concomitant]
  5. SPIRIVA [Concomitant]
  6. AMITRIPTYLINE [Concomitant]
  7. PREVACID [Concomitant]
  8. ACETYLSALICYLIC ACID [Concomitant]
  9. NITROGLYCERIN [Concomitant]
     Route: 062

REACTIONS (4)
  - DEPRESSED MOOD [None]
  - MALAISE [None]
  - NAUSEA [None]
  - WEIGHT DECREASED [None]
